FAERS Safety Report 7495613-7 (Version None)
Quarter: 2011Q2

REPORT INFORMATION
  Report Type: 
  Country: None (occurrence: None)
  Receive Date: 20110523
  Receipt Date: 20110512
  Transmission Date: 20111010
  Serious: Yes (Death, Hospitalization)
  Sender: FDA-Public Use
  Company Number: DE-JNJFOC-20110500819

PATIENT
  Age: 88 Year
  Sex: Female

DRUGS (17)
  1. MELNEURIN [Interacting]
     Indication: PRODUCT USED FOR UNKNOWN INDICATION
     Route: 048
     Dates: end: 20071114
  2. DOMINAL [Suspect]
     Indication: PRODUCT USED FOR UNKNOWN INDICATION
     Route: 048
     Dates: start: 20071114
  3. DOMINAL [Suspect]
     Route: 048
     Dates: end: 20071112
  4. NOVALGIN [Concomitant]
     Route: 048
     Dates: start: 20071124
  5. MELNEURIN [Interacting]
     Route: 048
     Dates: start: 20071124
  6. MELNEURIN [Interacting]
     Route: 048
     Dates: start: 20071118
  7. RISPERDAL [Suspect]
     Route: 048
     Dates: start: 20071112, end: 20071112
  8. RAMIPRIL [Concomitant]
     Route: 048
  9. RISPERDAL [Suspect]
     Indication: PRODUCT USED FOR UNKNOWN INDICATION
     Route: 048
     Dates: start: 20071113, end: 20071120
  10. LACTULOSE [Concomitant]
     Route: 048
  11. FURORESE [Concomitant]
     Route: 048
  12. RISPERDAL [Suspect]
     Route: 048
     Dates: start: 20071121
  13. METOPROLOL TARTRATE [Interacting]
     Indication: PRODUCT USED FOR UNKNOWN INDICATION
     Route: 048
  14. DOMINAL [Suspect]
     Route: 048
     Dates: start: 20071113, end: 20071113
  15. LANITOP [Concomitant]
     Route: 048
  16. ASPIRIN [Concomitant]
     Route: 048
  17. PLAVIX [Concomitant]
     Route: 048

REACTIONS (6)
  - RALES [None]
  - DRUG INTERACTION [None]
  - BACK PAIN [None]
  - DYSPNOEA [None]
  - DEATH [None]
  - RESTLESSNESS [None]
